FAERS Safety Report 18732174 (Version 1)
Quarter: 2021Q1

REPORT INFORMATION
  Report Type: Spontaneous
  Country: NL (occurrence: FR)
  Receive Date: 20210112
  Receipt Date: 20210112
  Transmission Date: 20210419
  Serious: Yes (Hospitalization)
  Sender: FDA-Public Use
  Company Number: FR-FRESENIUS KABI-FK202100254

PATIENT
  Age: 56 Year
  Sex: Female

DRUGS (5)
  1. SUXAMETHONIUM [Suspect]
     Active Substance: SUCCINYLCHOLINE
     Indication: GENERAL ANAESTHESIA
     Dosage: 70 MG IN TOTAL
     Route: 041
     Dates: start: 20190617
  2. PROPOFOL (MANUFACTURER UNKNOWN) [Suspect]
     Active Substance: PROPOFOL
     Indication: GENERAL ANAESTHESIA
     Dosage: 250 MG IN TOTAL
     Route: 041
     Dates: start: 20190617
  3. BETAMETHASONE ACETATE/DEXAMETHASONE SODIUM PHOSPHATE [Suspect]
     Active Substance: BETAMETHASONE ACETATE\DEXAMETHASONE SODIUM PHOSPHATE
     Indication: GENERAL ANAESTHESIA
     Dosage: 4 MG IN TOTAL
     Route: 041
     Dates: start: 20190617
  4. KETAMINE [Suspect]
     Active Substance: KETAMINE
     Indication: GENERAL ANAESTHESIA
     Dosage: 30 MCG IN TOTAL
     Route: 041
     Dates: start: 20190617
  5. SUFENTANIL [Suspect]
     Active Substance: SUFENTANIL
     Indication: GENERAL ANAESTHESIA
     Dosage: 20 MCG IN TOTAL
     Route: 041
     Dates: start: 20190617

REACTIONS (4)
  - Erythema [Recovered/Resolved]
  - Bronchospasm [Recovered/Resolved]
  - Tachycardia [Recovered/Resolved]
  - Anaphylactic shock [Recovered/Resolved]

NARRATIVE: CASE EVENT DATE: 20190617
